FAERS Safety Report 16084988 (Version 1)
Quarter: 2019Q2

REPORT INFORMATION
  Report Type: Spontaneous
  Country: PR (occurrence: PR)
  Receive Date: 20190318
  Receipt Date: 20190318
  Transmission Date: 20190711
  Serious: No
  Sender: FDA-Public Use
  Company Number: None

PATIENT
  Age: 84 Year
  Sex: Male
  Weight: 76.5 kg

DRUGS (1)
  1. VANCOMYCIN HYDROCHLORIDE. [Suspect]
     Active Substance: VANCOMYCIN HYDROCHLORIDE
     Indication: SUBCUTANEOUS ABSCESS
     Dosage: ?          OTHER FREQUENCY:EVERY 12 HOURS;?
     Route: 041
     Dates: start: 20190224, end: 20190302

REACTIONS (2)
  - Oedema peripheral [None]
  - Lip oedema [None]

NARRATIVE: CASE EVENT DATE: 20190225
